FAERS Safety Report 4434743-0 (Version None)
Quarter: 2004Q3

REPORT INFORMATION
  Report Type: 
  Country: None (occurrence: None)
  Receive Date: 20040827
  Receipt Date: 20040706
  Transmission Date: 20050211
  Serious: No
  Sender: FDA-Public Use
  Company Number: US-BRISTOL-MYERS SQUIBB COMPANY-12632774

PATIENT
  Age: 67 Year
  Sex: Male

DRUGS (1)
  1. DEFINITY [Suspect]
     Indication: ULTRASOUND SCAN
     Dosage: DILUTED BOLUS
     Route: 040
     Dates: start: 20040628, end: 20040628

REACTIONS (2)
  - BACK PAIN [None]
  - PAIN IN EXTREMITY [None]
